FAERS Safety Report 5996158-3 (Version None)
Quarter: 2008Q4

REPORT INFORMATION
  Report Type: 
  Country: None (occurrence: None)
  Receive Date: 20081212
  Receipt Date: 20081204
  Transmission Date: 20090506
  Serious: Yes (Death, Hospitalization)
  Sender: FDA-Public Use
  Company Number: BE-ABBOTT-08P-013-0487784-00

PATIENT
  Sex: Female
  Weight: 52 kg

DRUGS (13)
  1. HUMIRA [Suspect]
     Indication: RHEUMATOID ARTHRITIS
     Route: 058
     Dates: start: 20080403, end: 20081030
  2. METHOTREXATE [Suspect]
     Indication: RHEUMATOID ARTHRITIS
     Route: 048
     Dates: start: 20080403, end: 20081106
  3. LEKOVIT CA [Concomitant]
     Indication: OSTEOPOROSIS
     Dates: start: 19980101
  4. ESOMEPRAZOLE MAGNESIUM [Concomitant]
     Indication: PROPHYLAXIS AGAINST GASTROINTESTINAL ULCER
     Dates: start: 20040101
  5. FOLIC ACID [Concomitant]
     Indication: VITAMIN SUPPLEMENTATION
     Dates: start: 20080405
  6. AROTINOLOL HYDROCHLORIDE [Concomitant]
     Indication: DEPRESSION
     Dates: start: 20030101
  7. ISONIAZID [Concomitant]
     Indication: ANTIBIOTIC PROPHYLAXIS
     Dates: start: 20080320
  8. MELOXICAM [Concomitant]
     Indication: ARTHRALGIA
     Dates: start: 20080110, end: 20080403
  9. MELOXICAM [Concomitant]
     Dates: start: 20080404
  10. IBANDRONIC ACID [Concomitant]
     Indication: OSTEOPOROSIS
     Dates: start: 20050101
  11. PERCODAN-DEMI [Concomitant]
     Indication: ARTHRALGIA
     Dates: start: 20080428
  12. PYRIDOXINE HYDROCHLORIDE [Concomitant]
     Indication: ALOPECIA
     Dates: start: 20080509, end: 20080926
  13. TIOTROPIUM BROMIDE [Concomitant]
     Indication: TUBERCULOSIS
     Dates: start: 20080116

REACTIONS (4)
  - BRONCHOPNEUMONIA [None]
  - CARDIAC FAILURE [None]
  - RESPIRATORY FAILURE [None]
  - SYSTEMIC CANDIDA [None]
